FAERS Safety Report 6913217-9 (Version None)
Quarter: 2010Q3

REPORT INFORMATION
  Report Type: 
  Country: None (occurrence: None)
  Receive Date: 20100809
  Receipt Date: 20100806
  Transmission Date: 20110219
  Serious: Yes (Hospitalization, Other)
  Sender: FDA-Public Use
  Company Number: US-ASTRAZENECA-2007UW10163

PATIENT
  Age: 48 Year
  Sex: Female
  Weight: 127 kg

DRUGS (25)
  1. SEROQUEL [Suspect]
     Indication: BIPOLAR DISORDER
     Dosage: 100 TO 200 MG
     Route: 048
     Dates: start: 20040601, end: 20050801
  2. SEROQUEL [Suspect]
     Indication: DEPRESSION
     Dosage: 100 TO 200 MG
     Route: 048
     Dates: start: 20040601, end: 20050801
  3. SEROQUEL [Suspect]
     Dosage: 100 MG-400 MG
     Route: 048
     Dates: start: 20041010
  4. SEROQUEL [Suspect]
     Dosage: 100 MG-400 MG
     Route: 048
     Dates: start: 20041010
  5. GEODON [Concomitant]
     Dosage: 20-80 MG
     Dates: start: 20030101
  6. ZOLOFT [Concomitant]
     Indication: BIPOLAR DISORDER
     Dates: start: 20020101
  7. ZOLOFT [Concomitant]
     Dosage: 50 MG-200 MG
     Dates: start: 20041010
  8. LEVOXYL [Concomitant]
     Dates: start: 20060424
  9. HYDROCODONE BITARTRATE AND ACETAMINOPHEN [Concomitant]
     Dosage: 5/500, 7.5/500 TWO TIMES A DAY
     Route: 048
     Dates: start: 20060504
  10. FEXOFENADINE HCL [Concomitant]
     Dates: start: 20060504
  11. ALPRAZOLAM [Concomitant]
     Indication: ANXIETY
     Dosage: 1 MG-3 MG
     Route: 048
     Dates: start: 20060504
  12. HYDROCHLOROTHIAZIDE [Concomitant]
     Route: 048
     Dates: start: 20060508
  13. LIPITOR [Concomitant]
     Route: 048
     Dates: start: 20060509
  14. LISINOPRIL [Concomitant]
     Dates: start: 20060515
  15. METOPROLOL [Concomitant]
     Dates: start: 20060515
  16. ACTOS [Concomitant]
     Dates: start: 20060516
  17. HUMALOG [Concomitant]
     Dosage: 100 UNITS/ML, SLIDING SCALE
     Dates: start: 20060524
  18. LANTUS [Concomitant]
     Dosage: 55 UNITS, 70 UNITS, 100 UNITS/ML
     Route: 058
     Dates: start: 20060524
  19. CYMBALTA [Concomitant]
     Indication: NEUROPATHY PERIPHERAL
     Route: 048
     Dates: start: 20070816
  20. NORTRIPTYLINE [Concomitant]
     Indication: NEUROPATHY PERIPHERAL
     Dates: start: 20020605
  21. DIOVAN HCT [Concomitant]
     Indication: HYPERTENSION
     Dosage: 160/12.5
     Route: 048
     Dates: start: 20010605
  22. DIOVAN HCT [Concomitant]
     Dosage: 160/12.5
     Route: 048
     Dates: start: 20010605
  23. DIOVAN [Concomitant]
     Indication: HYPERTENSION
     Dates: start: 20010605
  24. DIOVAN [Concomitant]
     Dates: start: 20010605
  25. ZIAC [Concomitant]
     Indication: HYPERTENSION
     Dates: start: 20010605

REACTIONS (8)
  - ARTHROPATHY [None]
  - BLOOD CHOLESTEROL INCREASED [None]
  - DIABETIC NEUROPATHY [None]
  - HYPOGLYCAEMIA [None]
  - LIPOMA [None]
  - NEPHROLITHIASIS [None]
  - TYPE 1 DIABETES MELLITUS [None]
  - TYPE 2 DIABETES MELLITUS [None]
